FAERS Safety Report 10381807 (Version 5)
Quarter: 2015Q3

REPORT INFORMATION
  Report Type: Report from Study
  Country: US (occurrence: US)
  Receive Date: 20140813
  Receipt Date: 20150713
  Transmission Date: 20151125
  Serious: Yes (Hospitalization)
  Sender: FDA-Public Use
  Company Number: US-ACTELION-A-US2014-102936

PATIENT
  Age: 26 Year
  Sex: Male

DRUGS (4)
  1. VELETRI [Suspect]
     Active Substance: EPOPROSTENOL
     Indication: PULMONARY ARTERIAL HYPERTENSION
     Dosage: 21 NG/KG/MIN
     Route: 042
     Dates: start: 20140320
  2. LETAIRIS [Concomitant]
     Active Substance: AMBRISENTAN
  3. VELETRI [Suspect]
     Active Substance: EPOPROSTENOL
     Dosage: 25 NG/KG, PER MIN
     Route: 042
     Dates: start: 20140321
  4. ADCIRCA [Concomitant]
     Active Substance: TADALAFIL

REACTIONS (8)
  - Feeling of body temperature change [Unknown]
  - Headache [Unknown]
  - Anxiety [Unknown]
  - Pneumonia [Unknown]
  - Syncope [Unknown]
  - Pain in jaw [Unknown]
  - Diarrhoea [Unknown]
  - Depressed mood [Unknown]

NARRATIVE: CASE EVENT DATE: 201407
